FAERS Safety Report 6888279-8 (Version None)
Quarter: 2010Q3

REPORT INFORMATION
  Report Type: 
  Country: None (occurrence: None)
  Receive Date: 20100730
  Receipt Date: 20100720
  Transmission Date: 20110219
  Serious: Yes (Hospitalization, Other)
  Sender: FDA-Public Use
  Company Number: JP-BRISTOL-MYERS SQUIBB COMPANY-15056302

PATIENT
  Age: 27 Year
  Sex: Female

DRUGS (5)
  1. ABILIFY [Suspect]
     Indication: SCHIZOPHRENIA
     Dosage: ABILIFY TABS 6MG SEP07-AUG09:12MG QD DEC09-UNK:12MG QD
     Route: 048
     Dates: start: 20070901
  2. ABILIFY [Suspect]
     Indication: SCHIZOPHRENIA
     Dosage: ABILIFY ORAL SOLUTION 1%
     Route: 048
     Dates: start: 20100331
  3. RISPERDAL [Concomitant]
     Dosage: TABS
     Dates: start: 20061001, end: 20070901
  4. SEROQUEL [Concomitant]
     Dosage: TABS
     Dates: end: 20080901
  5. RITODRINE HYDROCHLORIDE [Concomitant]
     Dates: start: 20100321

REACTIONS (3)
  - PSYCHIATRIC SYMPTOM [None]
  - THREATENED LABOUR [None]
  - TWIN PREGNANCY [None]
